FAERS Safety Report 15750011 (Version 2)
Quarter: 2019Q1

REPORT INFORMATION
  Report Type: Report from Study
  Country: US (occurrence: US)
  Receive Date: 20181221
  Receipt Date: 20190129
  Transmission Date: 20190417
  Serious: Yes (Hospitalization, Other)
  Sender: FDA-Public Use
  Company Number: US-BAUSCH-BL-2018-035618

PATIENT
  Age: 55 Year
  Sex: Male
  Weight: 69.46 kg

DRUGS (1)
  1. XIFAXAN [Suspect]
     Active Substance: RIFAXIMIN
     Indication: HEPATIC CIRRHOSIS
     Route: 065

REACTIONS (5)
  - Inability to afford medication [Not Recovered/Not Resolved]
  - Therapy cessation [Not Recovered/Not Resolved]
  - Lower limb fracture [Recovering/Resolving]
  - Fall [Recovering/Resolving]
  - Ankle fracture [Recovering/Resolving]

NARRATIVE: CASE EVENT DATE: 20181215
